FAERS Safety Report 4751130-6 (Version None)
Quarter: 2005Q3

REPORT INFORMATION
  Report Type: 
  Country: None (occurrence: None)
  Receive Date: 20050822
  Receipt Date: 20050811
  Transmission Date: 20060218
  Serious: Yes (Hospitalization)
  Sender: FDA-Public Use
  Company Number: 142857USA

PATIENT
  Age: 71 Year
  Sex: Male

DRUGS (4)
  1. FLUOROURACIL [Suspect]
     Indication: COLON CANCER
     Dates: start: 20050101
  2. IRINOTECAN [Suspect]
     Indication: COLON CANCER
     Dates: start: 20050101
  3. LEUCOVORIN CALCIUM [Suspect]
     Indication: COLON CANCER
     Dates: start: 20050101
  4. OXALIPLATIN [Suspect]
     Indication: COLON CANCER
     Dates: start: 20050101

REACTIONS (5)
  - AMNESIA [None]
  - ENTEROCOLITIS [None]
  - FATIGUE [None]
  - HYPOVOLAEMIA [None]
  - SYNCOPE [None]
